FAERS Safety Report 23692853 (Version 1)
Quarter: 2024Q2

REPORT INFORMATION
  Report Type: Spontaneous
  Country: RU (occurrence: RU)
  Receive Date: 20240401
  Receipt Date: 20240401
  Transmission Date: 20240716
  Serious: Yes (Other)
  Sender: FDA-Public Use
  Company Number: RU-FreseniusKabi-FK202405351

PATIENT
  Age: 4 Month
  Sex: Female

DRUGS (11)
  1. ETOPOSIDE [Suspect]
     Active Substance: ETOPOSIDE
     Indication: Atypical teratoid/rhabdoid tumour of CNS
     Dosage: THE GENERAL DURATION OF PCT (POLYCHEMOTHERAPY) WAS 29 WEEKS, INCLUDING THE ALTERNATING CYCLES OF CYC
  2. CYTARABINE [Suspect]
     Active Substance: CYTARABINE
     Indication: Atypical teratoid/rhabdoid tumour of CNS
     Dosage: THE GENERAL DURATION OF PCT (POLYCHEMOTHERAPY) WAS 29 WEEKS, INCLUDING THE ALTERNATING CYCLES OF CYC
  3. IFOSFAMIDE [Concomitant]
     Active Substance: IFOSFAMIDE
     Indication: Atypical teratoid/rhabdoid tumour of CNS
     Dosage: THE GENERAL DURATION OF PCT (POLYCHEMOTHERAPY) WAS 29 WEEKS, INCLUDING THE ALTERNATING CYCLES OF CYC
  4. DOXORUBICIN [Concomitant]
     Active Substance: DOXORUBICIN
     Indication: Atypical teratoid/rhabdoid tumour of CNS
     Dosage: THE GENERAL DURATION OF PCT (POLYCHEMOTHERAPY) WAS 29 WEEKS, INCLUDING THE ALTERNATING CYCLES OF CYC
  5. CISPLATIN [Concomitant]
     Active Substance: CISPLATIN
     Indication: Atypical teratoid/rhabdoid tumour of CNS
     Dosage: THE GENERAL DURATION OF PCT (POLYCHEMOTHERAPY) WAS 29 WEEKS, INCLUDING THE ALTERNATING CYCLES OF CYC
  6. METHOTREXATE [Concomitant]
     Active Substance: METHOTREXATE
     Indication: Atypical teratoid/rhabdoid tumour of CNS
     Dosage: THE GENERAL DURATION OF PCT (POLYCHEMOTHERAPY) WAS 29 WEEKS, INCLUDING THE ALTERNATING CYCLES OF CYC
  7. VINCRISTINE [Concomitant]
     Active Substance: VINCRISTINE
     Indication: Atypical teratoid/rhabdoid tumour of CNS
     Dosage: THE GENERAL DURATION OF PCT (POLYCHEMOTHERAPY) WAS 29 WEEKS, INCLUDING THE ALTERNATING CYCLES OF CYC
  8. CYCLOPHOSPHAMIDE [Concomitant]
     Active Substance: CYCLOPHOSPHAMIDE
     Indication: Atypical teratoid/rhabdoid tumour of CNS
     Dosage: THE GENERAL DURATION OF PCT (POLYCHEMOTHERAPY) WAS 29 WEEKS, INCLUDING THE ALTERNATING CYCLES OF CYC
  9. hematopoietic stem cell transplantation [Concomitant]
     Indication: Atypical teratoid/rhabdoid tumour of CNS
  10. CARBOPLATIN [Concomitant]
     Active Substance: CARBOPLATIN
     Indication: Atypical teratoid/rhabdoid tumour of CNS
  11. THIOTEPA [Concomitant]
     Active Substance: THIOTEPA
     Indication: Atypical teratoid/rhabdoid tumour of CNS

REACTIONS (2)
  - Neutropenic colitis [Unknown]
  - Bone marrow failure [Unknown]
